FAERS Safety Report 9969889 (Version 1)
Quarter: 2014Q1

REPORT INFORMATION
  Report Type: Spontaneous
  Country: US (occurrence: None)
  Receive Date: 20140131
  Receipt Date: 20140131
  Transmission Date: 20141002
  Serious: Yes (Other)
  Sender: FDA-Public Use
  Company Number: 095959

PATIENT
  Sex: 0

DRUGS (2)
  1. KEPPRA [Suspect]
  2. SABRIL [Suspect]
     Indication: INFANTILE SPASMS
     Dosage: 13 ML, 5 ML AM, 8 ML EVENING X 14 DAYS
     Dates: start: 20100629

REACTIONS (1)
  - Seizure cluster [None]
